FAERS Safety Report 6581205-0 (Version None)
Quarter: 2010Q1

REPORT INFORMATION
  Report Type: 
  Country: None (occurrence: None)
  Receive Date: 20100215
  Receipt Date: 20100209
  Transmission Date: 20100710
  Serious: Yes (Death)
  Sender: FDA-Public Use
  Company Number: FR-ASTRAZENECA-2010SE05736

PATIENT
  Age: 28315 Day
  Sex: Male

DRUGS (15)
  1. NEXIUM [Suspect]
     Route: 048
     Dates: start: 20091202, end: 20100109
  2. ZOLOFT [Suspect]
     Indication: DEPRESSION
     Route: 048
     Dates: start: 20091224, end: 20100111
  3. SERESTA [Suspect]
     Indication: DEPRESSION
     Route: 048
     Dates: start: 20091203, end: 20091215
  4. SERESTA [Suspect]
     Route: 048
     Dates: start: 20091215, end: 20100110
  5. TAHOR [Suspect]
     Indication: HYPERCHOLESTEROLAEMIA
     Route: 048
     Dates: start: 20091202, end: 20100110
  6. KREDEX [Suspect]
     Indication: CARDIAC FAILURE
     Route: 048
     Dates: start: 20090901, end: 20100117
  7. KARDEGIC [Suspect]
     Indication: ISCHAEMIC HEART DISEASE PROPHYLAXIS
     Route: 048
     Dates: start: 20080101, end: 20100111
  8. LASILIX [Suspect]
     Indication: HYPERTENSION
     Route: 048
     Dates: start: 20080101, end: 20091229
  9. LASILIX [Suspect]
     Route: 048
     Dates: start: 20091230, end: 20100106
  10. LEVOTHYROXINE SODIUM [Suspect]
     Indication: HYPOTHYROIDISM
     Route: 048
     Dates: end: 20100113
  11. DIFFU K [Suspect]
     Indication: HYPOKALAEMIA
     Route: 048
     Dates: start: 20080101, end: 20091218
  12. DISCOTRINE [Suspect]
     Indication: CARDIAC FAILURE
     Route: 062
     Dates: start: 20090901, end: 20100111
  13. STABLON [Concomitant]
     Indication: DEPRESSION
     Route: 048
     Dates: start: 20091202, end: 20091223
  14. KAYEXALATE [Concomitant]
     Indication: HYPERCHOLESTEROLAEMIA
     Route: 048
     Dates: start: 20091218, end: 20091226
  15. ATARAX [Concomitant]
     Indication: DEPRESSION
     Route: 048
     Dates: end: 20091202

REACTIONS (1)
  - DISSEMINATED INTRAVASCULAR COAGULATION [None]
